FAERS Safety Report 7212584-9 (Version None)
Quarter: 2011Q1

REPORT INFORMATION
  Report Type: 
  Country: None (occurrence: None)
  Receive Date: 20110106
  Receipt Date: 20110103
  Transmission Date: 20110831
  Serious: No
  Sender: FDA-Public Use
  Company Number: US-PFIZER INC-2011000958

PATIENT
  Sex: Female
  Weight: 67.12 kg

DRUGS (5)
  1. ACETYLSALICYLIC ACID [Concomitant]
     Dosage: 81 MG, UNK
  2. LIPITOR [Suspect]
     Indication: BLOOD CHOLESTEROL INCREASED
     Dosage: 40 MG, UNK
     Route: 048
     Dates: start: 20020101, end: 20110101
  3. CO-Q-10 [Concomitant]
     Dosage: UNK
  4. ASCORBIC ACID [Concomitant]
     Dosage: UNK
  5. BENADRYL [Concomitant]
     Dosage: 25 MG, UNK

REACTIONS (4)
  - GASTROINTESTINAL DISORDER [None]
  - DIARRHOEA [None]
  - MALAISE [None]
  - NAUSEA [None]
